FAERS Safety Report 16653760 (Version 2)
Quarter: 2019Q3

REPORT INFORMATION
  Report Type: Spontaneous
  Country: DE (occurrence: DE)
  Receive Date: 20190731
  Receipt Date: 20190827
  Transmission Date: 20191004
  Serious: Yes (Other)
  Sender: FDA-Public Use
  Company Number: DE-PFIZER INC-2019323419

PATIENT
  Age: 64 Year
  Sex: Female

DRUGS (2)
  1. SUNITINIB MALATE. [Suspect]
     Active Substance: SUNITINIB MALATE
     Dosage: 25 MG, 1X/DAY
     Dates: start: 201702, end: 201707
  2. SUNITINIB MALATE. [Suspect]
     Active Substance: SUNITINIB MALATE
     Indication: METASTATIC RENAL CELL CARCINOMA
     Dosage: 50 MG, UNK
     Dates: start: 201304, end: 201411

REACTIONS (5)
  - Diabetes mellitus [Unknown]
  - Skin fissures [Recovered/Resolved]
  - Myocardial infarction [Unknown]
  - Neoplasm progression [Unknown]
  - Oral pain [Unknown]

NARRATIVE: CASE EVENT DATE: 201702
